FAERS Safety Report 9171832 (Version 2)
Quarter: 2013Q2

REPORT INFORMATION
  Report Type: Spontaneous
  Country: US (occurrence: US)
  Receive Date: 20130319
  Receipt Date: 20130429
  Transmission Date: 20140414
  Serious: Yes (Death, Hospitalization)
  Sender: FDA-Public Use
  Company Number: US-GILEAD-2013-0071995

PATIENT
  Age: 65 Year
  Sex: Female

DRUGS (2)
  1. LETAIRIS [Suspect]
     Indication: PRODUCT USED FOR UNKNOWN INDICATION
     Dosage: 10 MG, QD
     Dates: start: 20101208
  2. LETAIRIS [Suspect]
     Dates: start: 20101208

REACTIONS (4)
  - Death [Fatal]
  - Confusional state [Unknown]
  - Blood glucose decreased [Unknown]
  - Bronchitis [Unknown]
